FAERS Safety Report 17967376 (Version 2)
Quarter: 2020Q3

REPORT INFORMATION
  Report Type: Spontaneous
  Country: IT (occurrence: IT)
  Receive Date: 20200701
  Receipt Date: 20200729
  Transmission Date: 20201103
  Serious: Yes (Other)
  Sender: FDA-Public Use
  Company Number: IT-TEVA-2020-IT-1793840

PATIENT
  Age: 86 Year
  Sex: Female

DRUGS (1)
  1. ANAGRELIDE TEVA [Suspect]
     Active Substance: ANAGRELIDE
     Route: 065

REACTIONS (1)
  - Hypersensitivity [Recovered/Resolved]
